FAERS Safety Report 7815057-5 (Version None)
Quarter: 2011Q4

REPORT INFORMATION
  Report Type: 
  Country: None (occurrence: None)
  Receive Date: 20111014
  Receipt Date: 20111001
  Transmission Date: 20120403
  Serious: Yes (Hospitalization)
  Sender: FDA-Public Use
  Company Number: JP-ELI_LILLY_AND_COMPANY-JP201011000029

PATIENT
  Age: 64 Year
  Sex: Female

DRUGS (1)
  1. FORTEO [Suspect]
     Indication: OSTEOPOROSIS

REACTIONS (10)
  - INCORRECT DOSE ADMINISTERED [None]
  - MALAISE [None]
  - PAIN IN EXTREMITY [None]
  - FEELING COLD [None]
  - PYREXIA [None]
  - POST-TRAUMATIC NECK SYNDROME [None]
  - NASOPHARYNGITIS [None]
  - FALL [None]
  - DRUG DOSE OMISSION [None]
  - COLITIS ULCERATIVE [None]
